FAERS Safety Report 23963725 (Version 1)
Quarter: 2024Q2

REPORT INFORMATION
  Report Type: Spontaneous
  Country: CA (occurrence: CA)
  Receive Date: 20240611
  Receipt Date: 20240611
  Transmission Date: 20240716
  Serious: Yes (Life-Threatening, Hospitalization, Other)
  Sender: FDA-Public Use
  Company Number: CA-Covis Pharma Europe B.V.-2024COV00707

PATIENT
  Age: 65 Year
  Sex: Male
  Weight: 96 kg

DRUGS (110)
  1. CICLESONIDE [Suspect]
     Active Substance: CICLESONIDE
     Indication: Product used for unknown indication
  2. OMNARIS [Suspect]
     Active Substance: CICLESONIDE
     Indication: Product used for unknown indication
  3. ACETAZOLAMIDE [Suspect]
     Active Substance: ACETAZOLAMIDE
  4. ALENDRONATE SODIUM [Suspect]
     Active Substance: ALENDRONATE SODIUM
  5. ALENDRONATE SODIUM [Suspect]
     Active Substance: ALENDRONATE SODIUM
  6. ALENDRONATE SODIUM [Suspect]
     Active Substance: ALENDRONATE SODIUM
  7. ALENDRONATE SODIUM [Suspect]
     Active Substance: ALENDRONATE SODIUM
  8. APIXABAN [Suspect]
     Active Substance: APIXABAN
  9. AZATHIOPRINE [Suspect]
     Active Substance: AZATHIOPRINE
  10. AZATHIOPRINE [Suspect]
     Active Substance: AZATHIOPRINE
  11. AZATHIOPRINE [Suspect]
     Active Substance: AZATHIOPRINE
  12. AZATHIOPRINE [Suspect]
     Active Substance: AZATHIOPRINE
  13. AZITHROMYCIN [Suspect]
     Active Substance: AZITHROMYCIN
  14. BETAMETHASONE [Suspect]
     Active Substance: BETAMETHASONE\BETAMETHASONE DIPROPIONATE
  15. BISACODYL [Suspect]
     Active Substance: BISACODYL
  16. BUDESONIDE [Suspect]
     Active Substance: BUDESONIDE
  17. CALCIUM [Suspect]
     Active Substance: CALCIUM
  18. CALCIUM CARBONATE [Suspect]
     Active Substance: CALCIUM CARBONATE
  19. CALCIUM CARBONATE [Suspect]
     Active Substance: CALCIUM CARBONATE
  20. CALCIUM CARBONATE [Suspect]
     Active Substance: CALCIUM CARBONATE
  21. CALCIUM CARBONATE [Suspect]
     Active Substance: CALCIUM CARBONATE
  22. CANDESARTAN [Suspect]
     Active Substance: CANDESARTAN
  23. CEFUROXIME [Suspect]
     Active Substance: CEFUROXIME
  24. CEFUROXIME [Suspect]
     Active Substance: CEFUROXIME
  25. CEFUROXIME [Suspect]
     Active Substance: CEFUROXIME
  26. CEFUROXIME [Suspect]
     Active Substance: CEFUROXIME
  27. CEFUROXIME [Suspect]
     Active Substance: CEFUROXIME
  28. CEFUROXIME [Suspect]
     Active Substance: CEFUROXIME
  29. CEFUROXIME SODIUM [Suspect]
     Active Substance: CEFUROXIME SODIUM
  30. CEPHALEXIN [Suspect]
     Active Substance: CEPHALEXIN
  31. CEPHALEXIN [Suspect]
     Active Substance: CEPHALEXIN
  32. CLOTRIMAZOLE [Suspect]
     Active Substance: CLOTRIMAZOLE
  33. CROSCARMELLOSE SODIUM [Suspect]
     Active Substance: CROSCARMELLOSE SODIUM
  34. DIABETA [Suspect]
     Active Substance: GLYBURIDE
  35. DILTIAZEM [Suspect]
     Active Substance: DILTIAZEM
  36. DOMPERIDONE [Suspect]
     Active Substance: DOMPERIDONE
  37. DOMPERIDONE [Suspect]
     Active Substance: DOMPERIDONE
  38. DOMPERIDONE [Suspect]
     Active Substance: DOMPERIDONE
  39. DOXAZOSIN MESYLATE [Suspect]
     Active Substance: DOXAZOSIN MESYLATE
  40. DUTASTERIDE [Suspect]
     Active Substance: DUTASTERIDE
  41. DUTASTERIDE [Suspect]
     Active Substance: DUTASTERIDE
  42. DUTASTERIDE [Suspect]
     Active Substance: DUTASTERIDE
  43. DUTASTERIDE [Suspect]
     Active Substance: DUTASTERIDE
  44. ELIQUIS [Suspect]
     Active Substance: APIXABAN
  45. LEVOTHYROXINE [Suspect]
     Active Substance: LEVOTHYROXINE\LEVOTHYROXINE SODIUM
  46. ERGOCALCIFEROL [Suspect]
     Active Substance: ERGOCALCIFEROL
  47. ESCITALOPRAM [Suspect]
     Active Substance: ESCITALOPRAM OXALATE
  48. FLOMAX [Suspect]
     Active Substance: TAMSULOSIN HYDROCHLORIDE
  49. FORMOTEROL FUMARATE [Suspect]
     Active Substance: FORMOTEROL FUMARATE
  50. FUROSEMIDE [Suspect]
     Active Substance: FUROSEMIDE
  51. FUROSEMIDE [Suspect]
     Active Substance: FUROSEMIDE
  52. FUROSEMIDE [Suspect]
     Active Substance: FUROSEMIDE
  53. GLUCAGON [Suspect]
     Active Substance: GLUCAGON\GLUCAGON HYDROCHLORIDE\WATER
  54. HYDROCHLOROTHIAZIDE [Suspect]
     Active Substance: HYDROCHLOROTHIAZIDE
  55. INSULIN NOS [Suspect]
     Active Substance: INSULIN NOS
  56. LASIX [Suspect]
     Active Substance: FUROSEMIDE
  57. LEVOFLOXACIN [Suspect]
     Active Substance: LEVOFLOXACIN
  58. LEVOFLOXACIN [Suspect]
     Active Substance: LEVOFLOXACIN
  59. LEVOFLOXACIN [Suspect]
     Active Substance: LEVOFLOXACIN
  60. LEVOFLOXACIN [Suspect]
     Active Substance: LEVOFLOXACIN
  61. LEVOFLOXACIN [Suspect]
     Active Substance: LEVOFLOXACIN
  62. LEVOFLOXACIN [Suspect]
     Active Substance: LEVOFLOXACIN
  63. LEVOTHYROXINE SODIUM [Suspect]
     Active Substance: LEVOTHYROXINE SODIUM
  64. LIRAGLUTIDE [Suspect]
     Active Substance: LIRAGLUTIDE
  65. MAGNESIUM OXIDE [Suspect]
     Active Substance: MAGNESIUM OXIDE
  66. MAGNESIUM OXIDE [Suspect]
     Active Substance: MAGNESIUM OXIDE
  67. MAGNESIUM OXIDE [Suspect]
     Active Substance: MAGNESIUM OXIDE
  68. MAGNESIUM OXIDE [Suspect]
     Active Substance: MAGNESIUM OXIDE
  69. METFORMIN [Suspect]
     Active Substance: METFORMIN HYDROCHLORIDE
  70. METFORMIN [Suspect]
     Active Substance: METFORMIN HYDROCHLORIDE
  71. METFORMIN [Suspect]
     Active Substance: METFORMIN HYDROCHLORIDE
  72. METFORMIN [Suspect]
     Active Substance: METFORMIN HYDROCHLORIDE
  73. MONTELUKAST [Suspect]
     Active Substance: MONTELUKAST SODIUM
  74. MORNIFLUMATE [Suspect]
     Active Substance: MORNIFLUMATE
  75. MOXIFLOXACIN [Suspect]
     Active Substance: MOXIFLOXACIN
  76. NUCALA [Suspect]
     Active Substance: MEPOLIZUMAB
  77. PENICILLIN V POTASSIUM [Suspect]
     Active Substance: PENICILLIN V POTASSIUM
  78. PENICILLIN V POTASSIUM [Suspect]
     Active Substance: PENICILLIN V POTASSIUM
  79. PREDNISONE [Suspect]
     Active Substance: PREDNISONE
  80. PREDNISONE [Suspect]
     Active Substance: PREDNISONE
  81. PREDNISONE [Suspect]
     Active Substance: PREDNISONE
  82. PREDNISONE [Suspect]
     Active Substance: PREDNISONE
  83. PREDNISONE [Suspect]
     Active Substance: PREDNISONE
  84. RUPATADINE [Suspect]
     Active Substance: RUPATADINE
  85. ALBUTEROL [Suspect]
     Active Substance: ALBUTEROL
  86. ALBUTEROL [Suspect]
     Active Substance: ALBUTEROL
  87. ALBUTEROL [Suspect]
     Active Substance: ALBUTEROL
  88. SALMETEROL XINAFOATE [Suspect]
     Active Substance: SALMETEROL XINAFOATE
  89. SENNA LEAF [Suspect]
     Active Substance: SENNA LEAF
  90. SEPTRA [Suspect]
     Active Substance: SULFAMETHOXAZOLE\TRIMETHOPRIM
  91. SERTRALINE [Suspect]
     Active Substance: SERTRALINE HYDROCHLORIDE
  92. SPIRIVA [Suspect]
     Active Substance: TIOTROPIUM BROMIDE MONOHYDRATE
  93. SPIRIVA [Suspect]
     Active Substance: TIOTROPIUM BROMIDE MONOHYDRATE
  94. SULFADIAZINE [Suspect]
     Active Substance: SULFADIAZINE
  95. TAMSULOSIN HYDROCHLORIDE [Suspect]
     Active Substance: TAMSULOSIN HYDROCHLORIDE
  96. PANTOPRAZOLE SODIUM [Suspect]
     Active Substance: PANTOPRAZOLE SODIUM
  97. PANTOPRAZOLE SODIUM [Suspect]
     Active Substance: PANTOPRAZOLE SODIUM
  98. PANTOPRAZOLE SODIUM [Suspect]
     Active Substance: PANTOPRAZOLE SODIUM
  99. PANTOPRAZOLE SODIUM [Suspect]
     Active Substance: PANTOPRAZOLE SODIUM
  100. PANTOPRAZOLE SODIUM [Suspect]
     Active Substance: PANTOPRAZOLE SODIUM
  101. PANTOPRAZOLE MAGNESIUM [Suspect]
     Active Substance: PANTOPRAZOLE MAGNESIUM
  102. PANTOPRAZOLE MAGNESIUM [Suspect]
     Active Substance: PANTOPRAZOLE MAGNESIUM
  103. PANTOPRAZOLE MAGNESIUM [Suspect]
     Active Substance: PANTOPRAZOLE MAGNESIUM
  104. UMECLIDINIUM BROMIDE [Suspect]
     Active Substance: UMECLIDINIUM BROMIDE
  105. VITAMIN D3 [Suspect]
     Active Substance: CHOLECALCIFEROL
  106. VITAMIN C [Suspect]
     Active Substance: ASCORBIC ACID
  107. ROSUVASTATIN [Concomitant]
     Active Substance: ROSUVASTATIN
  108. SULFADIAZINE;TRIMETHORIM [Concomitant]
  109. SULFAMETHOXAZOLE [Concomitant]
     Active Substance: SULFAMETHOXAZOLE
  110. SULFAMETHOXAZOLE\TRIMETHOPRIM [Concomitant]
     Active Substance: SULFAMETHOXAZOLE\TRIMETHOPRIM

REACTIONS (37)
  - Antineutrophil cytoplasmic antibody positive [Unknown]
  - Anxiety [Unknown]
  - Arteriosclerosis [Unknown]
  - Arteriosclerosis coronary artery [Unknown]
  - Asthma [Unknown]
  - Condition aggravated [Unknown]
  - Conjunctivitis allergic [Unknown]
  - Dust allergy [Unknown]
  - Dyspnoea [Unknown]
  - Eosinophilic granulomatosis with polyangiitis [Unknown]
  - Forced expiratory volume decreased [Unknown]
  - Full blood count abnormal [Unknown]
  - Haemoptysis [Unknown]
  - Hypothyroidism [Unknown]
  - Hypoxia [Unknown]
  - Loss of personal independence in daily activities [Unknown]
  - Lung disorder [Unknown]
  - Mite allergy [Unknown]
  - Mycotic allergy [Unknown]
  - Neuritis [Unknown]
  - Neurological symptom [Unknown]
  - Nodule [Unknown]
  - Normochromic normocytic anaemia [Unknown]
  - Obstructive airways disorder [Unknown]
  - Pain in extremity [Unknown]
  - Productive cough [Unknown]
  - Pulmonary alveolar haemorrhage [Unknown]
  - Pulmonary embolism [Unknown]
  - Pulmonary fibrosis [Unknown]
  - Pulmonary vasculitis [Unknown]
  - Sleep disorder due to a general medical condition [Unknown]
  - Spirometry abnormal [Unknown]
  - Therapeutic product effect incomplete [Unknown]
  - Thrombosis [Unknown]
  - Total lung capacity abnormal [Unknown]
  - Vasculitis [Unknown]
  - Wheezing [Unknown]
